FAERS Safety Report 8136183-X (Version None)
Quarter: 2012Q1

REPORT INFORMATION
  Report Type: 
  Country: None (occurrence: None)
  Receive Date: 20120214
  Receipt Date: 20120203
  Transmission Date: 20120608
  Serious: Yes (Hospitalization)
  Sender: FDA-Public Use
  Company Number: CN-JNJFOC-20111208851

PATIENT
  Sex: Male
  Weight: 55 kg

DRUGS (13)
  1. CLONAZEPAM [Concomitant]
     Indication: PSYCHOTIC DISORDER
     Dosage: 4 MG TWICE IN THE EVENING
     Route: 030
     Dates: start: 20111216
  2. CLONAZEPAM [Concomitant]
     Route: 048
     Dates: start: 20111218
  3. CLONAZEPAM [Concomitant]
     Dosage: 4 MG ORALLY TWICE IN THE EVENING
     Route: 048
  4. BENZHEXOL [Concomitant]
     Indication: AKATHISIA
     Route: 048
     Dates: start: 20111216
  5. CLONAZEPAM [Concomitant]
     Route: 048
     Dates: start: 20111209
  6. CLONAZEPAM [Concomitant]
     Route: 048
     Dates: start: 20111218
  7. BENZHEXOL [Concomitant]
     Route: 048
     Dates: start: 20111205, end: 20111206
  8. CLONAZEPAM [Concomitant]
     Route: 048
     Dates: start: 20111209
  9. RISPERIDONE [Concomitant]
     Indication: PSYCHIATRIC SYMPTOM
     Route: 048
     Dates: start: 20111207, end: 20111207
  10. PALIPERIDONE [Suspect]
     Indication: SCHIZOPHRENIA
     Route: 048
     Dates: start: 20111209, end: 20111219
  11. CLONAZEPAM [Concomitant]
     Indication: INSOMNIA
     Dosage: 4 MG ORALLY TWICE IN THE EVENING
     Route: 048
  12. RISPERIDONE [Concomitant]
     Route: 048
     Dates: start: 20111205, end: 20111206
  13. CLONAZEPAM [Concomitant]
     Dosage: 20 MG STAT (IMMEDIATELY)
     Route: 030
     Dates: start: 20111217

REACTIONS (1)
  - PSYCHOTIC DISORDER [None]
